FAERS Safety Report 15376386 (Version 2)
Quarter: 2018Q3

REPORT INFORMATION
  Report Type: Report from Study
  Country: BR (occurrence: BR)
  Receive Date: 20180912
  Receipt Date: 20180920
  Transmission Date: 20181010
  Serious: Yes (Other)
  Sender: FDA-Public Use
  Company Number: PHHY2018BR091131

PATIENT
  Sex: Male
  Weight: 80 kg

DRUGS (3)
  1. ENTRESTO [Suspect]
     Active Substance: SACUBITRIL\VALSARTAN
     Dosage: 2 DF, QD
     Route: 048
  2. ENTRESTO [Suspect]
     Active Substance: SACUBITRIL\VALSARTAN
     Indication: CARDIAC FAILURE
     Dosage: UNK UNK, BID (3 MONTHS AGO)
     Route: 048
     Dates: start: 2018, end: 2018
  3. ENTRESTO [Suspect]
     Active Substance: SACUBITRIL\VALSARTAN
     Dosage: 100 MG (24 MG OF SACUBITRIL AND 26 MG OF VALSARTAN), BID (2 MONTHS AGO)
     Route: 048
     Dates: start: 2018, end: 20180829

REACTIONS (2)
  - Haemorrhoids [Recovered/Resolved]
  - Inflammation [Recovering/Resolving]
